FAERS Safety Report 7934504-1 (Version None)
Quarter: 2011Q4

REPORT INFORMATION
  Report Type: 
  Country: None (occurrence: None)
  Receive Date: 20111122
  Receipt Date: 20111119
  Transmission Date: 20120403
  Serious: Yes (Other)
  Sender: FDA-Public Use
  Company Number: US-PFIZER INC-2011283396

PATIENT
  Sex: Male
  Weight: 90.7 kg

DRUGS (3)
  1. EFFEXOR [Suspect]
     Dosage: 75 MG, DAILY
     Dates: end: 20111111
  2. EFFEXOR [Suspect]
     Dosage: 37.5 MG, DAILY
     Dates: end: 20111111
  3. EFFEXOR [Suspect]
     Indication: MOOD ALTERED
     Dosage: 150 MG, DAILY
     Dates: start: 20100101

REACTIONS (9)
  - ACTIVITIES OF DAILY LIVING IMPAIRED [None]
  - BEDRIDDEN [None]
  - ASTHENIA [None]
  - HEADACHE [None]
  - NAUSEA [None]
  - FATIGUE [None]
  - CRYING [None]
  - PARAESTHESIA [None]
  - MALAISE [None]
